FAERS Safety Report 11354972 (Version 2)
Quarter: 2015Q3

REPORT INFORMATION
  Report Type: Spontaneous
  Country: US (occurrence: US)
  Receive Date: 20150807
  Receipt Date: 20150902
  Transmission Date: 20151125
  Serious: No
  Sender: FDA-Public Use
  Company Number: US-JNJFOC-20150512200

PATIENT
  Sex: Male

DRUGS (6)
  1. BACTRIM [Concomitant]
     Active Substance: SULFAMETHOXAZOLE\TRIMETHOPRIM
     Route: 048
  2. ASPIRIN. [Concomitant]
     Active Substance: ASPIRIN
     Route: 065
  3. RISPERDAL CONSTA [Suspect]
     Active Substance: RISPERIDONE
     Indication: SCHIZOPHRENIA, PARANOID TYPE
     Route: 030
  4. RISPERDAL CONSTA [Suspect]
     Active Substance: RISPERIDONE
     Indication: SCHIZOPHRENIA
     Route: 030
  5. VIOXX [Concomitant]
     Active Substance: ROFECOXIB
     Indication: ARTHRITIS
     Route: 065
  6. RISPERDAL [Suspect]
     Active Substance: RISPERIDONE
     Indication: SCHIZOPHRENIA
     Route: 048
     Dates: start: 2003, end: 2013

REACTIONS (6)
  - Ocular hyperaemia [Unknown]
  - Weight increased [Recovering/Resolving]
  - Adverse event [Unknown]
  - Tangentiality [Unknown]
  - Pain in extremity [Unknown]
  - Gynaecomastia [Recovering/Resolving]
